FAERS Safety Report 6978145-1 (Version None)
Quarter: 2010Q3

REPORT INFORMATION
  Report Type: 
  Country: None (occurrence: None)
  Receive Date: 20100913
  Receipt Date: 20100812
  Transmission Date: 20110219
  Serious: Yes (Hospitalization, Other)
  Sender: FDA-Public Use
  Company Number: US-BAYER-201024190NA

PATIENT
  Age: 30 Year
  Sex: Female
  Weight: 73 kg

DRUGS (4)
  1. YASMIN [Suspect]
     Indication: CONTRACEPTION
     Route: 048
     Dates: start: 20050101, end: 20050801
  2. YASMIN [Suspect]
     Route: 048
     Dates: start: 20070701, end: 20080301
  3. YASMIN [Suspect]
     Route: 048
     Dates: start: 20051001, end: 20060201
  4. SYNTHROID [Concomitant]
     Indication: THYROID DISORDER
     Dates: start: 20060101

REACTIONS (4)
  - ABDOMINAL PAIN [None]
  - CHOLELITHIASIS [None]
  - EMOTIONAL DISTRESS [None]
  - GALLBLADDER DISORDER [None]
